FAERS Safety Report 14261042 (Version 6)
Quarter: 2018Q1

REPORT INFORMATION
  Report Type: Spontaneous
  Country: BR (occurrence: BR)
  Receive Date: 20171207
  Receipt Date: 20180227
  Transmission Date: 20180508
  Serious: Yes (Hospitalization, Other)
  Sender: FDA-Public Use
  Company Number: PHHY2017BR169361

PATIENT
  Sex: Male
  Weight: 60 kg

DRUGS (4)
  1. TEGRETOL XR [Suspect]
     Active Substance: CARBAMAZEPINE
     Dosage: 1.5 DF, UNK
     Route: 048
  2. TEGRETOL XR [Suspect]
     Active Substance: CARBAMAZEPINE
     Indication: EPILEPSY
     Dosage: 1 DF, (60 TABLETS) QD
     Route: 048
  3. TEGRETOL XR [Suspect]
     Active Substance: CARBAMAZEPINE
     Dosage: 1 DF, HALF A DAY
     Route: 048
     Dates: start: 201710, end: 201711
  4. DEPAKOTE [Concomitant]
     Active Substance: DIVALPROEX SODIUM
     Indication: EPILEPSY
     Dosage: 5 DF, QD
     Route: 048

REACTIONS (4)
  - Condition aggravated [Recovering/Resolving]
  - Seizure [Recovering/Resolving]
  - Epilepsy [Recovering/Resolving]
  - Abdominal pain [Recovering/Resolving]
